FAERS Safety Report 5938165-2 (Version None)
Quarter: 2008Q4

REPORT INFORMATION
  Report Type: 
  Country: None (occurrence: None)
  Receive Date: 20081031
  Receipt Date: 20081030
  Transmission Date: 20090506
  Serious: Yes (Death)
  Sender: FDA-Public Use
  Company Number: AU-B.I. PHARMACEUTICALS,INC./RIDGEFIELD-2008-BP-16445AU

PATIENT
  Sex: Male

DRUGS (14)
  1. SPIRIVA [Suspect]
     Dates: start: 20030701
  2. AMOXIL DUO [Concomitant]
     Dosage: 1 TWICE DAILY
     Route: 048
  3. ARTHRO-AID [Concomitant]
     Dosage: 1 TWICE DAILY
     Route: 048
  4. FERRO F [Concomitant]
     Dosage: 1 DAILY
     Route: 048
  5. MICARDIS [Concomitant]
     Dosage: 1 DAILY
     Route: 048
  6. MINOCYCLINE HCL [Concomitant]
     Dosage: 1 DAILY
     Route: 048
  7. ACETAMINOPHEN W/ CODEINE [Concomitant]
     Dosage: 2 FOUR TIMES DAILY WHEN REQUIRED
     Route: 048
  8. PANAMAX [Concomitant]
     Dosage: 2 FOUR TIMES DAILY WHEN REQUIRED
     Route: 048
  9. SEREPAX [Concomitant]
     Dosage: HALF TO ONE TWICE DAILY WHEN
     Route: 048
  10. SERETIDE [Concomitant]
     Dosage: 1 TWICE DAILY
     Route: 055
  11. SIGMACORT [Concomitant]
     Dosage: APPLY SEVERAL TIMES DAILY
     Route: 061
  12. SOMAC [Concomitant]
     Dosage: 1 DAILY
     Route: 048
  13. VENTOLIN DS [Concomitant]
     Dosage: 2 EVERY FOUR HOURS
     Route: 055
  14. VENTOLIN [Concomitant]
     Dosage: 1 FOUR TIMES DAILY
     Route: 055

REACTIONS (1)
  - MYOCARDIAL INFARCTION [None]
